FAERS Safety Report 24058437 (Version 1)
Quarter: 2024Q3

REPORT INFORMATION
  Report Type: Spontaneous
  Country: GB (occurrence: GB)
  Receive Date: 20240708
  Receipt Date: 20240708
  Transmission Date: 20241017
  Serious: Yes (Other)
  Sender: CELLTRION
  Company Number: GB-CELLTRION INC.-2024GB015901

PATIENT

DRUGS (7)
  1. RITUXIMAB [Suspect]
     Active Substance: RITUXIMAB
     Indication: Diffuse large B-cell lymphoma
  2. CYCLOPHOSPHAMIDE [Suspect]
     Active Substance: CYCLOPHOSPHAMIDE
  3. DOXORUBICIN [Suspect]
     Active Substance: DOXORUBICIN
  4. VINCRISTINE [Suspect]
     Active Substance: VINCRISTINE
  5. PREDNISONE [Suspect]
     Active Substance: PREDNISONE
  6. BEAM [Suspect]
     Active Substance: SODIUM FLUORIDE
  7. EPCORITAMAB [Suspect]
     Active Substance: EPCORITAMAB

REACTIONS (1)
  - Diffuse large B-cell lymphoma [Unknown]
